FAERS Safety Report 4443509-7 (Version None)
Quarter: 2004Q3

REPORT INFORMATION
  Report Type: 
  Country: None (occurrence: None)
  Receive Date: 20040901
  Receipt Date: 20040817
  Transmission Date: 20050211
  Serious: Yes (Hospitalization)
  Sender: FDA-Public Use
  Company Number: 04P-163-0270864-00

PATIENT
  Age: 18 Year
  Sex: Male

DRUGS (2)
  1. DEPAKOTE [Suspect]
     Dates: start: 20040501
  2. QUETIAPINE [Concomitant]

REACTIONS (1)
  - AGGRESSION [None]
